FAERS Safety Report 5947246-9 (Version None)
Quarter: 2008Q4

REPORT INFORMATION
  Report Type: 
  Country: None (occurrence: None)
  Receive Date: 20081110
  Receipt Date: 20081106
  Transmission Date: 20090506
  Serious: Yes (Death)
  Sender: FDA-Public Use
  Company Number: CA-B.I. PHARMACEUTICALS,INC./RIDGEFIELD-2008-CN-00578CN

PATIENT
  Age: 85 Year
  Sex: Male

DRUGS (2)
  1. MICARDIS [Suspect]
     Indication: BLOOD PRESSURE
  2. ANTIHYPERTENSIVE AGENTS [Concomitant]
     Indication: HYPERTENSION

REACTIONS (2)
  - DEATH [None]
  - DIZZINESS [None]
